FAERS Safety Report 23590495 (Version 2)
Quarter: 2024Q1

REPORT INFORMATION
  Report Type: Spontaneous
  Country: US (occurrence: None)
  Receive Date: 20240304
  Receipt Date: 20240307
  Transmission Date: 20240410
  Serious: No
  Sender: FDA-Public Use
  Company Number: 2024A047802

PATIENT
  Sex: Female

DRUGS (1)
  1. BREZTRI [Suspect]
     Active Substance: BUDESONIDE\FORMOTEROL\GLYCOPYRROLATE
     Route: 055
     Dates: start: 20210226

REACTIONS (2)
  - Panic reaction [Unknown]
  - Device delivery system issue [Unknown]
